FAERS Safety Report 4620464-8 (Version None)
Quarter: 2005Q1

REPORT INFORMATION
  Report Type: 
  Country: None (occurrence: None)
  Receive Date: 20050324
  Receipt Date: 20050307
  Transmission Date: 20050727
  Serious: Yes (Hospitalization)
  Sender: FDA-Public Use
  Company Number: 10451

PATIENT
  Age: 65 Year
  Sex: Male

DRUGS (4)
  1. FLUOROURACIL [Suspect]
     Indication: COLON CANCER STAGE III
     Dosage: 400 MG/M2 PER_CYCLE IV
     Route: 042
     Dates: start: 20050118
  2. FLUOROURACIL [Suspect]
     Indication: COLON CANCER STAGE III
     Dosage: 2400 MG/M2 PER_CYCLE IV
     Route: 042
     Dates: start: 20050118
  3. LEUCOVORIN CALCIUM [Suspect]
     Indication: COLON CANCER STAGE III
     Dosage: 400 MG/M2 PER_CYCLE IV
     Route: 042
     Dates: start: 20050118
  4. DEXAMETHASONE [Suspect]
     Indication: PROPHYLAXIS OF NAUSEA AND VOMITING

REACTIONS (4)
  - BLOOD CULTURE POSITIVE [None]
  - CYSTITIS [None]
  - MYOSITIS [None]
  - STAPHYLOCOCCAL INFECTION [None]
